FAERS Safety Report 9296924 (Version 5)
Quarter: 2014Q2

REPORT INFORMATION
  Report Type: Report from Study
  Country: CA (occurrence: CA)
  Receive Date: 20130518
  Receipt Date: 20140403
  Transmission Date: 20141212
  Serious: Yes (Other)
  Sender: FDA-Public Use
  Company Number: CA-ROCHE-1157979

PATIENT
  Age: 49 Year
  Sex: Male
  Weight: 84.8 kg

DRUGS (15)
  1. RITUXAN [Suspect]
     Indication: DERMATOMYOSITIS
     Dosage: ON 09/AUG/2013,RECEIVED LAST DOSE OF RITUXIMAB
     Route: 042
     Dates: start: 20121102
  2. RITUXAN [Suspect]
     Indication: OFF LABEL USE
  3. AZATHIOPRINE [Concomitant]
     Route: 065
     Dates: start: 20120907
  4. PREDNISONE [Concomitant]
  5. IMMUNOGLOBULIN IV [Concomitant]
     Route: 065
     Dates: start: 20120912
  6. FOLIC ACID [Concomitant]
  7. CO ETIDROCAL [Concomitant]
  8. NEXIUM [Concomitant]
  9. SYMBICORT [Concomitant]
  10. ACETAMINOPHEN [Concomitant]
     Indication: PREMEDICATION
     Route: 048
     Dates: start: 20121102
  11. DIPHENHYDRAMINE HCL [Concomitant]
     Indication: PREMEDICATION
     Route: 048
     Dates: start: 20121102
  12. METHYLPREDNISOLONE [Concomitant]
     Indication: PREMEDICATION
     Route: 042
     Dates: start: 20121102
  13. COVERSYL [Concomitant]
  14. PENTOXIFYLLINE [Concomitant]
  15. ACTONEL [Concomitant]

REACTIONS (8)
  - Palpitations [Recovered/Resolved]
  - Liver function test abnormal [Not Recovered/Not Resolved]
  - Aspartate aminotransferase increased [Recovering/Resolving]
  - Alanine aminotransferase increased [Recovering/Resolving]
  - Biopsy liver abnormal [Unknown]
  - Weight increased [Unknown]
  - Off label use [Unknown]
  - Herpes zoster [Not Recovered/Not Resolved]
